FAERS Safety Report 15868173 (Version 1)
Quarter: 2019Q1

REPORT INFORMATION
  Report Type: Spontaneous
  Country: US (occurrence: US)
  Receive Date: 20190125
  Receipt Date: 20190125
  Transmission Date: 20190417
  Serious: Yes (Other)
  Sender: FDA-Public Use
  Company Number: None

PATIENT
  Age: 49 Year
  Sex: Female
  Weight: 52.65 kg

DRUGS (1)
  1. MEDROXYPROGESTERONE 10MG [Suspect]
     Active Substance: MEDROXYPROGESTERONE ACETATE
     Indication: MENORRHAGIA
     Dosage: ?          QUANTITY:80 TABLET(S);?
     Route: 048
     Dates: start: 20181116, end: 20190125

REACTIONS (2)
  - Muscle spasms [None]
  - Product use complaint [None]

NARRATIVE: CASE EVENT DATE: 20190124
